FAERS Safety Report 24109537 (Version 1)
Quarter: 2024Q3

REPORT INFORMATION
  Report Type: Spontaneous
  Country: NL (occurrence: NL)
  Receive Date: 20240718
  Receipt Date: 20240718
  Transmission Date: 20241017
  Serious: Yes (Other)
  Sender: AUROBINDO
  Company Number: NL-LRB-00985279

PATIENT
  Age: 43 Year
  Sex: Female
  Weight: 85 kg

DRUGS (1)
  1. TRAMADOL HYDROCHLORIDE [Suspect]
     Active Substance: TRAMADOL HYDROCHLORIDE
     Indication: Back pain
     Dosage: 50 MILLIGRAM, ONCE A DAY (1DD1)
     Route: 065
     Dates: start: 20240625

REACTIONS (2)
  - Arrhythmia [Not Recovered/Not Resolved]
  - Diarrhoea [Not Recovered/Not Resolved]
